FAERS Safety Report 25578822 (Version 1)
Quarter: 2025Q3

REPORT INFORMATION
  Report Type: Spontaneous
  Country: US (occurrence: US)
  Receive Date: 20250718
  Receipt Date: 20250718
  Transmission Date: 20251020
  Serious: No
  Sender: BAYER HEALTHCARE LLC
  Company Number: US-BAYER-2025A093124

PATIENT
  Age: 49 Year
  Sex: Female

DRUGS (6)
  1. CLARITIN [Suspect]
     Active Substance: LORATADINE
     Indication: Nasal congestion
     Dates: start: 20250621
  2. HYDROXYCHLOROQUINE [Concomitant]
     Active Substance: HYDROXYCHLOROQUINE
  3. DULOXETINE [Concomitant]
     Active Substance: DULOXETINE
  4. TIZANIDINE [Concomitant]
     Active Substance: TIZANIDINE
  5. BUPRENORPHINE [Concomitant]
     Active Substance: BUPRENORPHINE
  6. LYRICA [Concomitant]
     Active Substance: PREGABALIN

REACTIONS (1)
  - Drug ineffective for unapproved indication [None]

NARRATIVE: CASE EVENT DATE: 20250621
